FAERS Safety Report 5243296-9 (Version None)
Quarter: 2007Q1

REPORT INFORMATION
  Report Type: 
  Country: None (occurrence: None)
  Receive Date: 20070213
  Receipt Date: 20070129
  Transmission Date: 20070707
  Serious: Yes (Death)
  Sender: FDA-Public Use
  Company Number: GXKR2007CA01297

PATIENT
  Sex: 0

DRUGS (1)
  1. CODEINE PHOSPHATE (NGX) (CODEINE PHOSPHATE) UNKNOWN [Suspect]
     Dosage: VIA LACTATION

REACTIONS (2)
  - DRUG EXPOSURE VIA BREAST MILK [None]
  - OVERDOSE [None]
